FAERS Safety Report 7209189-2 (Version None)
Quarter: 2011Q1

REPORT INFORMATION
  Report Type: 
  Country: None (occurrence: None)
  Receive Date: 20110104
  Receipt Date: 20101215
  Transmission Date: 20110831
  Serious: Yes (Hospitalization, Congenital Anomaly)
  Sender: FDA-Public Use
  Company Number: A0681647A

PATIENT
  Sex: Female
  Weight: 3.5 kg

DRUGS (2)
  1. PAXIL [Suspect]
     Indication: ANXIETY
     Dosage: 20MG PER DAY
     Dates: start: 20000601, end: 20000911
  2. PRENATAL VITAMINS [Concomitant]

REACTIONS (6)
  - GLOSSOPTOSIS [None]
  - CLEFT PALATE [None]
  - MICROGNATHIA [None]
  - PIERRE ROBIN SYNDROME [None]
  - APNOEA [None]
  - DRUG EXPOSURE DURING PREGNANCY [None]
